FAERS Safety Report 19996331 (Version 1)
Quarter: 2021Q4

REPORT INFORMATION
  Report Type: Other
  Country: GR (occurrence: GR)
  Receive Date: 20211026
  Receipt Date: 20211026
  Transmission Date: 20220303
  Serious: Yes (Hospitalization)
  Sender: FDA-Public Use
  Company Number: GR-ORBION PHARMACEUTICALS PRIVATE LIMITED-2120994

PATIENT
  Age: 72 Year
  Sex: Female

DRUGS (1)
  1. AMLODIPINE BESYLATE [Suspect]
     Active Substance: AMLODIPINE BESYLATE
     Route: 048

REACTIONS (8)
  - Suicide attempt [Recovered/Resolved]
  - Overdose [Recovered/Resolved]
  - Shock [Recovered/Resolved]
  - Sinus rhythm [Recovered/Resolved]
  - Dyspnoea [Recovered/Resolved]
  - Mental status changes [Recovered/Resolved]
  - Acute pulmonary oedema [Recovered/Resolved]
  - Vasoplegia syndrome [Recovered/Resolved]
